FAERS Safety Report 8051319-7 (Version None)
Quarter: 2012Q1

REPORT INFORMATION
  Report Type: 
  Country: None (occurrence: None)
  Receive Date: 20120117
  Receipt Date: 20120113
  Transmission Date: 20120608
  Serious: Yes (Other)
  Sender: FDA-Public Use
  Company Number: BR-ABBOTT-12P-020-0890050-00

PATIENT
  Sex: Female
  Weight: 45 kg

DRUGS (9)
  1. FERROUS SULFATE TAB [Concomitant]
     Indication: ANAEMIA
     Route: 048
  2. HUMIRA [Suspect]
     Indication: RHEUMATOID ARTHRITIS
     Route: 058
     Dates: start: 20110819, end: 20110901
  3. OMEPRAZOLE [Concomitant]
     Indication: PROPHYLAXIS
     Route: 048
  4. ARAVA [Concomitant]
     Indication: RHEUMATOID ARTHRITIS
     Route: 048
  5. VITAMIN B COMPLEX CAP [Concomitant]
     Indication: ANAEMIA
     Route: 048
  6. SODIUM DICLOFENAC [Concomitant]
     Indication: ARTHRALGIA
     Route: 048
  7. LOSARTAN POTASSIUM [Concomitant]
     Indication: HYPERTENSION
     Route: 048
  8. FOLIC ACID [Concomitant]
     Indication: ANAEMIA
     Route: 048
  9. OMEPRAZOLE [Concomitant]
     Indication: GASTRIC DISORDER

REACTIONS (5)
  - ARTHRALGIA [None]
  - INTESTINAL PERFORATION [None]
  - WEIGHT DECREASED [None]
  - DECREASED APPETITE [None]
  - SCAR [None]
